FAERS Safety Report 18092577 (Version 2)
Quarter: 2020Q3

REPORT INFORMATION
  Report Type: Spontaneous
  Country: JP (occurrence: JP)
  Receive Date: 20200730
  Receipt Date: 20200827
  Transmission Date: 20201103
  Serious: Yes (Hospitalization)
  Sender: FDA-Public Use
  Company Number: JP-KOWA-20JP002008

PATIENT

DRUGS (5)
  1. AZILVA [Concomitant]
     Active Substance: AZILSARTAN KAMEDOXOMIL
     Indication: PRODUCT USED FOR UNKNOWN INDICATION
     Dosage: 20 MG, QD
     Route: 048
     Dates: start: 20180316, end: 20190308
  2. AZILVA [Concomitant]
     Active Substance: AZILSARTAN KAMEDOXOMIL
     Dosage: 20 MG, BID
     Route: 048
     Dates: start: 20190309
  3. LIVALO [Suspect]
     Active Substance: PITAVASTATIN CALCIUM
     Indication: LIPIDS ABNORMAL
     Dosage: 2 MG, QD
     Route: 048
     Dates: start: 20190216, end: 20190608
  4. TOPILORIC [Suspect]
     Active Substance: TOPIROXOSTAT
     Dosage: 20 MG, QD
     Route: 048
     Dates: start: 20190216, end: 20190314
  5. TOPILORIC [Suspect]
     Active Substance: TOPIROXOSTAT
     Indication: BLOOD URIC ACID ABNORMAL
     Dosage: 40 MG, QD
     Route: 048
     Dates: start: 20190309, end: 20190608

REACTIONS (1)
  - Hepatic function abnormal [Recovering/Resolving]

NARRATIVE: CASE EVENT DATE: 20190518
